FAERS Safety Report 9153896 (Version 6)
Quarter: 2013Q4

REPORT INFORMATION
  Report Type: Spontaneous
  Country: US (occurrence: US)
  Receive Date: 20130311
  Receipt Date: 20131127
  Transmission Date: 20140711
  Serious: Yes (Hospitalization, Other)
  Sender: FDA-Public Use
  Company Number: US-MERCK-1303USA003985

PATIENT
  Sex: Female
  Weight: 66.21 kg

DRUGS (6)
  1. FOSAMAX [Suspect]
     Indication: PROPHYLAXIS
     Dosage: 70 MG, QW
     Route: 048
  2. FOSAMAX [Suspect]
     Dosage: 10 MG, QD
     Route: 048
  3. ALENDRONATE SODIUM [Suspect]
     Dosage: 70 MG, QW
  4. CALCIUM (UNSPECIFIED) [Concomitant]
     Dosage: 800 MG, QD
     Dates: start: 1980
  5. SYNTHROID [Concomitant]
     Indication: HYPOTHYROIDISM
     Dosage: 0.125 MG, UNK
  6. SYNTHROID [Concomitant]
     Indication: OSTEOPOROSIS

REACTIONS (61)
  - Femur fracture [Unknown]
  - Open reduction of fracture [Unknown]
  - Device failure [Unknown]
  - Hip arthroplasty [Unknown]
  - Chronic obstructive pulmonary disease [Not Recovered/Not Resolved]
  - Fracture delayed union [Unknown]
  - Low turnover osteopathy [Unknown]
  - Chronic obstructive pulmonary disease [Not Recovered/Not Resolved]
  - Anxiety [Unknown]
  - Cardiac failure congestive [Unknown]
  - Diastolic dysfunction [Not Recovered/Not Resolved]
  - Hypertension [Unknown]
  - Hypercholesterolaemia [Unknown]
  - Spinal osteoarthritis [Unknown]
  - Osteoarthritis [Unknown]
  - Pain [Not Recovered/Not Resolved]
  - Chondrocalcinosis pyrophosphate [Unknown]
  - Tonsillectomy [Unknown]
  - Cholelithiasis [Unknown]
  - Gait disturbance [Not Recovered/Not Resolved]
  - Stress urinary incontinence [Unknown]
  - Fungal infection [Unknown]
  - Scar [Unknown]
  - Hyponatraemia [Unknown]
  - Cardiomegaly [Unknown]
  - Atelectasis [Unknown]
  - Phlebitis [Recovered/Resolved]
  - Intervertebral disc degeneration [Unknown]
  - Varicose vein operation [Unknown]
  - Bunion operation [Unknown]
  - Spondylitis [Unknown]
  - Abdominal hernia [Unknown]
  - Cystoscopy [Unknown]
  - Hydronephrosis [Unknown]
  - Lung disorder [Unknown]
  - Pulmonary valve incompetence [Unknown]
  - Mitral valve incompetence [Unknown]
  - Aortic valve incompetence [Unknown]
  - Ileus [Recovering/Resolving]
  - Ureterocele [Unknown]
  - Postoperative respiratory distress [Unknown]
  - Blood glucose increased [Recovered/Resolved]
  - Gastrointestinal sounds abnormal [Unknown]
  - Ecchymosis [Unknown]
  - Large intestinal obstruction [Unknown]
  - Chronic obstructive pulmonary disease [Not Recovered/Not Resolved]
  - Tachycardia [Not Recovered/Not Resolved]
  - Sinus tachycardia [Unknown]
  - Foot operation [Unknown]
  - Carpal tunnel decompression [Unknown]
  - Carpal tunnel decompression [Unknown]
  - Vaginal haemorrhage [Unknown]
  - White blood cell count increased [Recovered/Resolved]
  - Cataract operation [Unknown]
  - Biliary colic [Unknown]
  - Joint swelling [Unknown]
  - Diarrhoea [Unknown]
  - Abdominal distension [Unknown]
  - Constipation [Unknown]
  - Gastrooesophageal reflux disease [Unknown]
  - Osteoarthritis [Unknown]
